FAERS Safety Report 10034543 (Version 1)
Quarter: 2014Q1

REPORT INFORMATION
  Report Type: Spontaneous
  Country: US (occurrence: None)
  Receive Date: 20140324
  Receipt Date: 20140324
  Transmission Date: 20141002
  Serious: Yes (Other)
  Sender: FDA-Public Use
  Company Number: None

PATIENT
  Age: 71 Year
  Sex: Female

DRUGS (7)
  1. MARCAINE SPINAL [Suspect]
     Indication: SPINAL ANAESTHESIA
     Route: 037
     Dates: start: 20140319
  2. MARCAINE SPINAL [Suspect]
     Indication: HIP ARTHROPLASTY
     Route: 037
     Dates: start: 20140319
  3. CEFAZOLIN [Concomitant]
  4. MIDAZOLAM [Concomitant]
  5. ONDANSETRON [Concomitant]
  6. FENTANYL [Concomitant]
  7. PROPOFOL [Concomitant]

REACTIONS (1)
  - Drug ineffective [None]
